FAERS Safety Report 23580154 (Version 1)
Quarter: 2024Q1

REPORT INFORMATION
  Report Type: Spontaneous
  Country: US (occurrence: US)
  Receive Date: 20240229
  Receipt Date: 20240229
  Transmission Date: 20240409
  Serious: No
  Sender: FDA-Public Use
  Company Number: US-APELLIS PHARMACEUTICALS-APL-2023-003442

PATIENT
  Sex: Male

DRUGS (4)
  1. SYFOVRE [Suspect]
     Active Substance: PEGCETACOPLAN
     Indication: Dry age-related macular degeneration
     Dosage: UNK, (FIRST DOSE)
     Dates: start: 20231101, end: 20231101
  2. SYFOVRE [Suspect]
     Active Substance: PEGCETACOPLAN
     Dosage: OD (SECOND DOSE)
     Dates: start: 20231211, end: 20231211
  3. ELIQUIS [Concomitant]
     Active Substance: APIXABAN
     Indication: Atrial fibrillation
  4. FLECAINIDE [Concomitant]
     Active Substance: FLECAINIDE
     Indication: Atrial fibrillation

REACTIONS (3)
  - Eye haemorrhage [Unknown]
  - Eye pain [Unknown]
  - Vitreous floaters [Not Recovered/Not Resolved]
